FAERS Safety Report 12906069 (Version 1)
Quarter: 2016Q4

REPORT INFORMATION
  Report Type: Spontaneous
  Country: US (occurrence: US)
  Receive Date: 20161101
  Receipt Date: 20161101
  Transmission Date: 20170207
  Serious: No
  Sender: FDA-Public Use
  Company Number: None

PATIENT
  Age: 60 Year
  Sex: Female

DRUGS (1)
  1. HUMIRA [Suspect]
     Active Substance: ADALIMUMAB
     Indication: PSORIATIC ARTHROPATHY
     Dosage: 40MG EVERY 14 DAYS SUBQ
     Route: 058
     Dates: start: 20160924

REACTIONS (2)
  - Photopsia [None]
  - Vitreous floaters [None]

NARRATIVE: CASE EVENT DATE: 20161022
